FAERS Safety Report 8338691-5 (Version None)
Quarter: 2012Q2

REPORT INFORMATION
  Report Type: 
  Country: None (occurrence: None)
  Receive Date: 20120504
  Receipt Date: 20120502
  Transmission Date: 20120825
  Serious: Yes (Death, Hospitalization, Other)
  Sender: FDA-Public Use
  Company Number: US-ELI_LILLY_AND_COMPANY-US201107004502

PATIENT
  Sex: Male

DRUGS (11)
  1. FISH OIL [Concomitant]
     Dosage: UNK, QD
  2. NOVOLOG [Concomitant]
  3. GLUCOPHAGE [Concomitant]
     Dosage: 500 MG, UNK
  4. TRAMADOL HCL [Concomitant]
  5. ZOCOR [Concomitant]
     Dosage: 80 MG, QD
  6. LASIX [Concomitant]
     Dosage: 40 MG, PRN
  7. LISINOPRIL AND HYDROCHLOROTHIAZIDE [Concomitant]
     Dosage: UNK, QD
  8. BYETTA [Suspect]
     Dosage: 10 UG, BID
     Dates: start: 20070101, end: 20071101
  9. LANTUS [Concomitant]
     Dosage: 35 U, EACH EVENING
  10. ATENOLOL [Concomitant]
     Dosage: 25 MG, QD
  11. ASPIRIN [Concomitant]
     Dosage: UNK, QD

REACTIONS (3)
  - RENAL FAILURE [None]
  - PANCREATITIS [None]
  - PANCREATIC CARCINOMA [None]
